FAERS Safety Report 4891177-2 (Version None)
Quarter: 2006Q1

REPORT INFORMATION
  Report Type: 
  Country: None (occurrence: None)
  Receive Date: 20060125
  Receipt Date: 20060119
  Transmission Date: 20060701
  Serious: Yes (Other)
  Sender: FDA-Public Use
  Company Number: BR-GLAXOSMITHKLINE-A0590133A

PATIENT
  Age: 50 Year
  Sex: Male

DRUGS (8)
  1. FONDAPARINUX SODIUM [Suspect]
     Dosage: 2.5MG PER DAY
     Route: 058
     Dates: start: 20040805, end: 20040810
  2. ASPIRIN [Concomitant]
  3. CLOPIDOGREL [Concomitant]
  4. METOPROLOL [Concomitant]
  5. CAPTOPRIL [Concomitant]
  6. ISOSORBIDE MONONITRATE [Concomitant]
  7. SIMVASTATIN [Concomitant]
  8. CARBAMAZEPINE [Concomitant]

REACTIONS (1)
  - CORONARY ARTERY THROMBOSIS [None]
